FAERS Safety Report 7312444-9 (Version None)
Quarter: 2011Q1

REPORT INFORMATION
  Report Type: 
  Country: None (occurrence: None)
  Receive Date: 20110224
  Receipt Date: 20110222
  Transmission Date: 20110831
  Serious: Yes (Other)
  Sender: FDA-Public Use
  Company Number: US-ABBOTT-11P-163-0706599-00

PATIENT
  Sex: Female

DRUGS (1)
  1. VICODIN [Suspect]
     Indication: PAIN
     Dates: start: 19950101, end: 19950101

REACTIONS (4)
  - THROAT TIGHTNESS [None]
  - VOMITING [None]
  - ANAPHYLACTIC SHOCK [None]
  - RASH [None]
